FAERS Safety Report 23343361 (Version 1)
Quarter: 2023Q4

REPORT INFORMATION
  Report Type: Spontaneous
  Country: IT (occurrence: IT)
  Receive Date: 20231227
  Receipt Date: 20231227
  Transmission Date: 20240110
  Serious: Yes (Other)
  Sender: FDA-Public Use
  Company Number: None

PATIENT
  Age: 4 Year
  Sex: Male

DRUGS (6)
  1. EVEROLIMUS [Suspect]
     Active Substance: EVEROLIMUS
     Indication: Optic glioma
     Dosage: 6 MG, QD
     Route: 048
  2. DEXAMETHASONE [Suspect]
     Active Substance: DEXAMETHASONE
     Indication: Optic glioma
     Dosage: UNK
     Route: 048
     Dates: start: 20230513, end: 20230717
  3. DEXAMETHASONE [Suspect]
     Active Substance: DEXAMETHASONE
     Dosage: 1.5 MG, TID (1.5 MG X 3/DIE E DAL 24/05/2023 SCALATO GRADUALMENTE FINO ALLA SOSPENSIONE)
     Route: 048
     Dates: start: 20230525
  4. RAMIPRIL [Concomitant]
     Active Substance: RAMIPRIL
     Indication: Hypertension
     Dosage: UNK
     Route: 048
  5. AMLODIPINE [Concomitant]
     Active Substance: AMLODIPINE BESYLATE
     Indication: Hypertension
     Dosage: UNK
     Route: 048
  6. BEVACIZUMAB [Concomitant]
     Active Substance: BEVACIZUMAB
     Indication: Optic glioma
     Dosage: 150 MG, Q2W (10MG/KG)
     Route: 042

REACTIONS (1)
  - Hypercholesterolaemia [Recovered/Resolved]

NARRATIVE: CASE EVENT DATE: 20230524
